FAERS Safety Report 20705223 (Version 2)
Quarter: 2022Q2

REPORT INFORMATION
  Report Type: Spontaneous
  Country: BG (occurrence: BG)
  Receive Date: 20220413
  Receipt Date: 20220427
  Transmission Date: 20220721
  Serious: Yes (Hospitalization)
  Sender: FDA-Public Use
  Company Number: BG-ADIPHARM EAD-BGVR19032022_08INI

PATIENT
  Age: 64 Year
  Sex: Male

DRUGS (6)
  1. AMLODIPINE BESYLATE [Suspect]
     Active Substance: AMLODIPINE BESYLATE
     Dosage: 5 MG, 2X/DAY
     Route: 048
  2. CLOPIDOGREL [Suspect]
     Active Substance: CLOPIDOGREL BISULFATE
     Dosage: 75 MG, 1X/DAY
     Route: 048
  3. VALSARTAN [Suspect]
     Active Substance: VALSARTAN
     Dosage: 80 MG, 1X/DAY
     Route: 048
  4. ROSUVASTATIN [Suspect]
     Active Substance: ROSUVASTATIN
     Indication: Hypercholesterolaemia
     Dosage: 10 MG, 1X/DAY
     Route: 048
  5. PENTOXIFYLLINE [Suspect]
     Active Substance: PENTOXIFYLLINE
     Dosage: 400 MG, 1X/DAY
     Route: 048
  6. METOPROLOL [Suspect]
     Active Substance: METOPROLOL
     Dosage: 50 MG/DAILY
     Route: 048

REACTIONS (3)
  - Pain in extremity [Recovered/Resolved]
  - Back pain [Recovered/Resolved]
  - Off label use [Unknown]
